FAERS Safety Report 8786287 (Version 3)
Quarter: 2012Q4

REPORT INFORMATION
  Report Type: 
  Country: GB (occurrence: GB)
  Receive Date: 20120914
  Receipt Date: 20121009
  Transmission Date: 20130627
  Serious: Yes (Other)
  Sender: FDA-Public Use
  Company Number: PHHY2009GB02586

PATIENT
  Age: 26 None
  Sex: Male

DRUGS (6)
  1. CLOZARIL [Suspect]
     Indication: SCHIZOPHRENIA
     Route: 048
     Dates: start: 20081105, end: 20090123
  2. OLANZAPINE [Concomitant]
     Indication: SCHIZOPHRENIA
     Dosage: 25 mg daily
     Route: 048
  3. RABEPRAZOLE [Concomitant]
     Dosage: 10 mg daily
     Route: 048
  4. PROPRANOLOL [Concomitant]
     Dosage: 20 mg daily
     Route: 048
  5. VALPROATE SODIUM [Concomitant]
     Indication: CONVULSION
     Dosage: 2000 mg daily
     Route: 048
  6. LOPERAMIDE [Concomitant]
     Dosage: 8 mg daily
     Route: 048

REACTIONS (3)
  - Tricuspid valve incompetence [Not Recovered/Not Resolved]
  - Myocarditis [Not Recovered/Not Resolved]
  - Tachycardia [Not Recovered/Not Resolved]
